FAERS Safety Report 22212163 (Version 1)
Quarter: 2023Q2

REPORT INFORMATION
  Report Type: Spontaneous
  Country: US (occurrence: US)
  Receive Date: 20230414
  Receipt Date: 20230414
  Transmission Date: 20230722
  Serious: Yes (Death)
  Sender: FDA-Public Use
  Company Number: US-ELI_LILLY_AND_COMPANY-US202304005913

PATIENT
  Age: 70 Year
  Sex: Male

DRUGS (1)
  1. CETUXIMAB [Suspect]
     Active Substance: CETUXIMAB
     Indication: Product used for unknown indication
     Dosage: 900 MG, UNKNOWN (4 X 200 MG VIALS AND 1 X 100 MG VIAL)
     Route: 042

REACTIONS (2)
  - Death [Fatal]
  - Product storage error [Unknown]

NARRATIVE: CASE EVENT DATE: 20230402
